FAERS Safety Report 4825811-X (Version None)
Quarter: 2005Q4

REPORT INFORMATION
  Report Type: 
  Country: None (occurrence: None)
  Receive Date: 20051111
  Receipt Date: 20051021
  Transmission Date: 20060501
  Serious: Yes (Disabling)
  Sender: FDA-Public Use
  Company Number: DE-GLAXOSMITHKLINE-D0047782A

PATIENT
  Age: 66 Year
  Sex: Female
  Weight: 57 kg

DRUGS (5)
  1. AVANDAMET [Suspect]
     Indication: DIABETES MELLITUS NON-INSULIN-DEPENDENT
     Route: 048
     Dates: start: 20050101, end: 20051001
  2. ENALAPRIL [Concomitant]
     Indication: HYPERTENSION
     Dosage: 5MG UNKNOWN
     Route: 048
     Dates: start: 20000101
  3. ACTONEL [Concomitant]
     Indication: OSTEOPOROSIS
     Dosage: 35MG WEEKLY
     Route: 048
     Dates: start: 20020101
  4. VITAMIN D + CALCIUM [Concomitant]
     Route: 048
  5. ASPIRIN [Concomitant]
     Indication: HYPERTENSION
     Dosage: 100MG PER DAY
     Route: 048
     Dates: start: 20000101

REACTIONS (2)
  - FACE OEDEMA [None]
  - PAROTID GLAND ENLARGEMENT [None]
